FAERS Safety Report 13081956 (Version 1)
Quarter: 2017Q1

REPORT INFORMATION
  Report Type: Spontaneous
  Country: US (occurrence: US)
  Receive Date: 20170103
  Receipt Date: 20170103
  Transmission Date: 20170428
  Serious: No
  Sender: FDA-Public Use
  Company Number: US-BAYER-2016-244461

PATIENT
  Age: 85 Year
  Sex: Male

DRUGS (4)
  1. RIFAMPIN. [Concomitant]
     Active Substance: RIFAMPIN
  2. PYRAZINAMIDE. [Concomitant]
     Active Substance: PYRAZINAMIDE
  3. MOXIFLOXACIN ORAL [Suspect]
     Active Substance: MOXIFLOXACIN
     Indication: MYCOBACTERIAL DISEASE CARRIER
  4. INH [Concomitant]
     Active Substance: ISONIAZID

REACTIONS (1)
  - Product use issue [None]
